FAERS Safety Report 5732836-9 (Version None)
Quarter: 2008Q2

REPORT INFORMATION
  Report Type: 
  Country: None (occurrence: None)
  Receive Date: 20080507
  Receipt Date: 20080507
  Transmission Date: 20081010
  Serious: Yes (Life-Threatening)
  Sender: FDA-Public Use
  Company Number: None

PATIENT
  Age: 53 Year
  Sex: Female
  Weight: 74.8435 kg

DRUGS (2)
  1. LYRICA [Suspect]
     Indication: FIBROMYALGIA
     Dosage: 75 MG -STARTER PACK- 2 TIMES PO
     Route: 048
     Dates: start: 20080327, end: 20080401
  2. LYRICA [Suspect]
     Indication: FIBROMYALGIA
     Dosage: 100 MG 3 TIMES PO
     Route: 048
     Dates: start: 20080402, end: 20080405

REACTIONS (3)
  - DIARRHOEA [None]
  - FREQUENT BOWEL MOVEMENTS [None]
  - GASTROINTESTINAL INFLAMMATION [None]
